FAERS Safety Report 8399748-6 (Version None)
Quarter: 2012Q2

REPORT INFORMATION
  Report Type: 
  Country: None (occurrence: None)
  Receive Date: 20120531
  Receipt Date: 20120519
  Transmission Date: 20120825
  Serious: Yes (Other)
  Sender: FDA-Public Use
  Company Number: US-PFIZER INC-2012121645

PATIENT
  Sex: Male
  Weight: 91.3 kg

DRUGS (11)
  1. LANTUS [Concomitant]
     Indication: DIABETES MELLITUS
     Dosage: 20 IU, 1X/DAY
     Route: 058
     Dates: start: 20100714
  2. METFORMIN [Concomitant]
     Indication: DIABETES MELLITUS
     Dosage: 1000 MG, 2X/DAY
     Route: 048
     Dates: start: 20090812
  3. VIAGRA [Suspect]
     Indication: ERECTILE DYSFUNCTION
     Dosage: 100 MG, AS NEEDED
     Route: 048
     Dates: start: 20070115, end: 20120306
  4. ARICEPT [Concomitant]
     Indication: AMNESIA
     Dosage: 10 MG, 1X/DAY
     Route: 048
     Dates: start: 20110807
  5. PRAVACHOL [Concomitant]
     Indication: HYPERLIPIDAEMIA
     Dosage: 20 MG, 1X/DAY
     Route: 048
     Dates: start: 20110517
  6. ATIVAN [Concomitant]
     Indication: ANXIETY
     Dosage: 0.5 MG, 3X/DAY
     Route: 048
     Dates: start: 20080703
  7. BAPINEUZUMAB [Suspect]
     Indication: DEMENTIA ALZHEIMER'S TYPE
     Dosage: 1.0 MG/KG
     Route: 051
     Dates: start: 20120118, end: 20120118
  8. ASPIRIN [Concomitant]
     Indication: PROPHYLAXIS
     Dosage: 325 MG, 1X/DAY
     Route: 048
  9. MAVIK [Concomitant]
     Indication: HYPERTENSION
     Dosage: 2 MG, 1X/DAY
     Route: 048
     Dates: start: 20100628
  10. NOVOLOG [Concomitant]
     Indication: DIABETES MELLITUS
     Dosage: 5 IU, 3X/DAY
     Route: 058
     Dates: start: 20090812
  11. METOPROLOL TARTRATE [Concomitant]
     Indication: HYPERTENSION
     Dosage: 25 MG, 1X/DAY
     Route: 048
     Dates: start: 20100628

REACTIONS (1)
  - LIVER FUNCTION TEST ABNORMAL [None]
